FAERS Safety Report 7336099-2 (Version None)
Quarter: 2011Q1

REPORT INFORMATION
  Report Type: 
  Country: None (occurrence: None)
  Receive Date: 20110307
  Receipt Date: 20110224
  Transmission Date: 20110831
  Serious: Yes (Hospitalization, Other)
  Sender: FDA-Public Use
  Company Number: SE-ASTRAZENECA-2011SE10407

PATIENT
  Age: 54 Year
  Sex: Female

DRUGS (7)
  1. SEROQUEL [Suspect]
     Indication: ADJUSTMENT DISORDER
     Route: 048
  2. ATARAX [Concomitant]
  3. DIMETIKON MEDA [Concomitant]
  4. XERODENT LOZENGE [Concomitant]
     Dosage: 28.6 MG/0.25 MG
  5. ZOLPIDEM TARTRATE [Concomitant]
  6. PROPAVAN [Concomitant]
  7. SEROQUEL [Suspect]
     Route: 048
     Dates: start: 20080521, end: 20080830

REACTIONS (3)
  - ALOPECIA [None]
  - MUSCLE DISORDER [None]
  - SENSORY DISTURBANCE [None]
